FAERS Safety Report 13428085 (Version 1)
Quarter: 2017Q2

REPORT INFORMATION
  Report Type: Report from Study
  Country: US (occurrence: US)
  Receive Date: 20170411
  Receipt Date: 20170411
  Transmission Date: 20170830
  Serious: Yes (Death, Other)
  Sender: FDA-Public Use
  Company Number: US-KADMON PHARMACEUTICALS, LLC-KAD201704-000615

PATIENT

DRUGS (3)
  1. RIBAVIRIN. [Suspect]
     Active Substance: RIBAVIRIN
     Indication: HEPATITIS C
     Route: 048
  2. PEGYLATED INTERFERON LAMBDA [Suspect]
     Active Substance: PEGINTERFERON LAMBDA-1A
     Indication: HEPATITIS C
     Dosage: INJECTION
     Route: 058
  3. DACLATASVIR. [Suspect]
     Active Substance: DACLATASVIR
     Indication: HEPATITIS C

REACTIONS (2)
  - Anaemia [Unknown]
  - Multiple organ dysfunction syndrome [Fatal]
